FAERS Safety Report 9170778 (Version 1)
Quarter: 2013Q1

REPORT INFORMATION
  Report Type: Spontaneous
  Country: GB (occurrence: None)
  Receive Date: 20130311
  Receipt Date: 20130311
  Transmission Date: 20140127
  Serious: Yes (Other)
  Sender: FDA-Public Use
  Company Number: 201302013

PATIENT
  Sex: Male

DRUGS (1)
  1. XIAPEX (CLOSTRIDIAL COLLAGENASE) [Suspect]
     Indication: PRODUCT USED FOR UNKNOWN INDICATION
     Dosage: 1 IN 1 D, INTRALESIONAL

REACTIONS (2)
  - Pain [None]
  - Haemorrhoidal haemorrhage [None]
